FAERS Safety Report 5859130-X (Version None)
Quarter: 2008Q3

REPORT INFORMATION
  Report Type: 
  Country: None (occurrence: None)
  Receive Date: 20080827
  Receipt Date: 20080822
  Transmission Date: 20090109
  Serious: Yes (Death, Hospitalization)
  Sender: FDA-Public Use
  Company Number: PHHY2008FR19030

PATIENT
  Sex: Male

DRUGS (24)
  1. MYFORTIC [Suspect]
     Indication: GRAFT VERSUS HOST DISEASE
     Dosage: 3 DF/DAY
     Dates: start: 20070115
  2. SANDOGLOBULIN [Suspect]
     Indication: LYMPHOPENIA
     Dosage: 27 G EVERY 3 WEEKS
     Route: 042
     Dates: start: 20061201
  3. SANDOGLOBULIN [Suspect]
     Dosage: 2 VIALS OF 10 G
     Dates: start: 20080122
  4. SANDOGLOBULIN [Suspect]
     Dosage: 1 VIAL OF 3 G
     Dates: start: 20080122
  5. SANDOGLOBULIN [Suspect]
     Dosage: 2 VIALS OF 10 G
     Dates: start: 20080212
  6. SANDOGLOBULIN [Suspect]
     Dosage: 1 VIAL OF 3 G
     Dates: start: 20080212
  7. SANDOGLOBULIN [Suspect]
     Dosage: 2 VIALS OF 10 G
     Dates: start: 20080305
  8. SANDOGLOBULIN [Suspect]
     Dosage: 1 VIAL OF 3 G
     Dates: start: 20080305
  9. SANDOGLOBULIN [Suspect]
     Dosage: 2 VIALS OF 10 G
     Dates: start: 20080325
  10. SANDOGLOBULIN [Suspect]
     Dosage: 1 VIAL OF 3 G
     Dates: start: 20080325
  11. METHOTREXATE [Suspect]
     Indication: GRAFT VERSUS HOST DISEASE
     Dosage: 20 MG WEEKLY DOSE
     Dates: start: 20050801
  12. PROTOPIC [Suspect]
     Indication: GRAFT VERSUS HOST DISEASE
     Dosage: UNK
     Dates: start: 20070701
  13. PENTACARINAT [Suspect]
     Dosage: UNK
     Dates: start: 20070401
  14. RAPAMUNE [Suspect]
     Indication: GRAFT VERSUS HOST DISEASE
     Dosage: UNK
     Dates: start: 20080402
  15. BISOPROLOL FUMARATE [Concomitant]
     Dosage: 3.75 MG/DAY
  16. BETAMETHASONE [Concomitant]
  17. URSOLVAN-200 [Concomitant]
  18. LASIX [Concomitant]
  19. ALDACTONE [Concomitant]
  20. DIURETICS [Concomitant]
  21. BISOPROLOL FUMARATE [Concomitant]
     Dosage: 10 MG/DAY
  22. MOPRAL [Concomitant]
     Dosage: UNK
     Dates: start: 20050901
  23. ZELITREX [Concomitant]
     Dosage: UNK
     Dates: start: 20051201
  24. CLARITHROMYCIN [Concomitant]

REACTIONS (19)
  - ACUTE GRAFT VERSUS HOST DISEASE IN SKIN [None]
  - CARDIAC ARREST [None]
  - CARDIAC DISORDER [None]
  - CHEST PAIN [None]
  - CHRONIC GRAFT VERSUS HOST DISEASE [None]
  - COMPLICATIONS OF BONE MARROW TRANSPLANT [None]
  - ELECTROCARDIOGRAM REPOLARISATION ABNORMALITY [None]
  - ELECTROCARDIOGRAM ST SEGMENT DEPRESSION [None]
  - ELECTROCARDIOGRAM ST SEGMENT ELEVATION [None]
  - ELECTROMECHANICAL DISSOCIATION [None]
  - LUNG DISORDER [None]
  - MITRAL VALVE INCOMPETENCE [None]
  - MYOCARDIAL INFARCTION [None]
  - N-TERMINAL PROHORMONE BRAIN NATRIURETIC PEPTIDE [None]
  - OEDEMA PERIPHERAL [None]
  - PIGMENTATION DISORDER [None]
  - RESUSCITATION [None]
  - SCLERODERMA [None]
  - TROPONIN INCREASED [None]
